FAERS Safety Report 7651221-6 (Version None)
Quarter: 2011Q3

REPORT INFORMATION
  Report Type: 
  Country: None (occurrence: None)
  Receive Date: 20110727
  Receipt Date: 20110719
  Transmission Date: 20111222
  Serious: Yes (Death, Hospitalization, Other)
  Sender: FDA-Public Use
  Company Number: HALO20110001

PATIENT
  Age: 21 Year
  Sex: Male

DRUGS (3)
  1. TRIHEXYPHENIDYL HYDROCHLORIDE [Suspect]
     Indication: BIPOLAR DISORDER
     Dosage: 2 MG, ORAL
     Route: 048
  2. HALOPERIDOL [Suspect]
     Indication: BIPOLAR DISORDER
     Dosage: 10 MG, ORAL
     Route: 048
  3. LITHIUM (LITHIUM) (TABLETS) [Suspect]
     Indication: BIPOLAR DISORDER
     Dosage: 300 MG, ORAL
     Route: 048

REACTIONS (7)
  - CHEST PAIN [None]
  - AREFLEXIA [None]
  - RESPIRATORY FAILURE [None]
  - CARDIAC ARREST [None]
  - BRADYCARDIA [None]
  - DRUG INTERACTION [None]
  - VOMITING [None]
